FAERS Safety Report 26163305 (Version 1)
Quarter: 2025Q4

REPORT INFORMATION
  Report Type: Report from Study
  Country: MX (occurrence: MX)
  Receive Date: 20251216
  Receipt Date: 20251216
  Transmission Date: 20260117
  Serious: Yes (Death)
  Sender: NOVARTIS
  Company Number: MX-002147023-NVSC2025MX191926

PATIENT
  Age: 93 Year
  Sex: Female
  Weight: 38 kg

DRUGS (6)
  1. EXFORGE HCT [Suspect]
     Active Substance: AMLODIPINE BESYLATE\HYDROCHLOROTHIAZIDE\VALSARTAN
     Indication: Hypertension
     Dosage: 1 DOSAGE FORM, QD
     Route: 048
     Dates: start: 2017
  2. HYDROCHLOROTHIAZIDE\VALSARTAN [Suspect]
     Active Substance: HYDROCHLOROTHIAZIDE\VALSARTAN
     Indication: Hypertension
     Dosage: 1 DOSAGE FORM
     Route: 048
     Dates: start: 2018, end: 202411
  3. DIOVAN [Suspect]
     Active Substance: VALSARTAN
     Indication: Hypertension
     Dosage: 160 MG
     Route: 048
     Dates: start: 2021
  4. LERCANIDIPINE [Concomitant]
     Active Substance: LERCANIDIPINE
     Indication: Hypertension
     Dosage: 10 MG, QD (CAPSULE)
     Route: 048
  5. CLOPIDOGREL [Concomitant]
     Active Substance: CLOPIDOGREL BISULFATE
     Indication: Hypertension
     Dosage: 75 MG, QD (TABLET)
     Route: 048
  6. PROPAFENONE [Concomitant]
     Active Substance: PROPAFENONE
     Indication: Hypertension
     Dosage: 150 MG, QD
     Route: 048

REACTIONS (8)
  - Death [Fatal]
  - Dengue fever [Recovered/Resolved]
  - Peripheral swelling [Unknown]
  - General physical health deterioration [Unknown]
  - Eating disorder [Unknown]
  - Back pain [Unknown]
  - Arthralgia [Unknown]
  - Body height decreased [Unknown]

NARRATIVE: CASE EVENT DATE: 20210701
